FAERS Safety Report 17368857 (Version 1)
Quarter: 2020Q1

REPORT INFORMATION
  Report Type: Spontaneous
  Country: US (occurrence: US)
  Receive Date: 20200204
  Receipt Date: 20200204
  Transmission Date: 20200409
  Serious: Yes (Other)
  Sender: FDA-Public Use
  Company Number: US-SA-2020SA021571

PATIENT
  Age: 66 Year
  Sex: Female

DRUGS (2)
  1. ENOXAPARIN SODIUM. [Suspect]
     Active Substance: ENOXAPARIN SODIUM
     Indication: HILAR LYMPHADENOPATHY
     Dosage: UNK
  2. WARFARIN SODIUM. [Suspect]
     Active Substance: WARFARIN SODIUM
     Indication: HILAR LYMPHADENOPATHY
     Dosage: UNK

REACTIONS (7)
  - Nausea [Unknown]
  - Dysphagia [Unknown]
  - Oesophageal compression [Unknown]
  - Haematoma [Recovered/Resolved]
  - Anticoagulation drug level above therapeutic [Unknown]
  - Vomiting [Unknown]
  - Anaplastic large cell lymphoma T- and null-cell types [Unknown]
